FAERS Safety Report 25131621 (Version 1)
Quarter: 2025Q1

REPORT INFORMATION
  Report Type: Spontaneous
  Country: US (occurrence: US)
  Receive Date: 20250327
  Receipt Date: 20250327
  Transmission Date: 20250409
  Serious: Yes (Life-Threatening, Hospitalization, Congenital Anomaly, Other)
  Sender: PURDUE
  Company Number: US-NAPPMUNDI-GBR-2025-0124378

PATIENT
  Sex: Male

DRUGS (5)
  1. HYDROMORPHONE HYDROCHLORIDE [Suspect]
     Active Substance: HYDROMORPHONE HYDROCHLORIDE
     Indication: Foetal exposure during pregnancy
     Route: 064
  2. FLUOXETINE [Suspect]
     Active Substance: FLUOXETINE HYDROCHLORIDE
     Indication: Foetal exposure during pregnancy
     Route: 064
  3. QUETIAPINE [Suspect]
     Active Substance: QUETIAPINE
     Indication: Foetal exposure during pregnancy
     Route: 064
  4. CLONAZEPAM [Suspect]
     Active Substance: CLONAZEPAM
     Indication: Foetal exposure during pregnancy
     Route: 064
  5. HEROIN [Suspect]
     Active Substance: DIAMORPHINE
     Indication: Foetal exposure during pregnancy
     Route: 064

REACTIONS (7)
  - Hypertonia neonatal [Unknown]
  - Decerebrate posture [Unknown]
  - Congenital central nervous system anomaly [Unknown]
  - Tonic posturing [Unknown]
  - Drug withdrawal syndrome neonatal [Unknown]
  - Premature baby [Unknown]
  - Foetal exposure during pregnancy [Unknown]
